FAERS Safety Report 5393835-2 (Version None)
Quarter: 2007Q3

REPORT INFORMATION
  Report Type: 
  Country: None (occurrence: None)
  Receive Date: 20070719
  Receipt Date: 20070719
  Transmission Date: 20080115
  Serious: Yes (Other)
  Sender: FDA-Public Use
  Company Number: None

PATIENT
  Age: 55 Year
  Sex: Female
  Weight: 95.2554 kg

DRUGS (2)
  1. NEURONTIN [Suspect]
     Indication: HYPOAESTHESIA
     Dates: start: 20030701, end: 20040401
  2. NEURONTIN [Suspect]
     Indication: SPINAL OSTEOARTHRITIS
     Dates: start: 20030701, end: 20040401

REACTIONS (2)
  - MENTAL STATUS CHANGES [None]
  - NIGHTMARE [None]
